FAERS Safety Report 20126336 (Version 1)
Quarter: 2021Q4

REPORT INFORMATION
  Report Type: Spontaneous
  Country: CA (occurrence: CA)
  Receive Date: 20211129
  Receipt Date: 20211129
  Transmission Date: 20220303
  Serious: Yes (Hospitalization)
  Sender: FDA-Public Use
  Company Number: CA-TEVA-2021-CA-1981326

PATIENT
  Age: 78 Year
  Sex: Female

DRUGS (1)
  1. DILTIAZEM [Suspect]
     Active Substance: DILTIAZEM
     Route: 065

REACTIONS (4)
  - Atrioventricular block complete [Unknown]
  - Atrioventricular block second degree [Unknown]
  - Cardiac pacemaker insertion [Unknown]
  - Heart rate decreased [Unknown]
